FAERS Safety Report 19824541 (Version 1)
Quarter: 2021Q3

REPORT INFORMATION
  Report Type: Spontaneous
  Country: CA (occurrence: CA)
  Receive Date: 20210914
  Receipt Date: 20210914
  Transmission Date: 20211014
  Serious: Yes (Other)
  Sender: FDA-Public Use
  Company Number: CA-BAYER-2021-209042

PATIENT
  Age: 64 Year
  Sex: Female

DRUGS (3)
  1. DIPHENHYDRAMINE HYDROCHLORIDE. [Concomitant]
     Active Substance: DIPHENHYDRAMINE HYDROCHLORIDE
     Dosage: 50 MG
     Route: 042
  2. GADOVIST [Suspect]
     Active Substance: GADOBUTROL
     Dosage: UNK, ONCE
     Dates: start: 20210909, end: 20210909
  3. PREDNISONE. [Concomitant]
     Active Substance: PREDNISONE
     Dosage: 50 MG, TID
     Route: 048

REACTIONS (2)
  - Oropharyngeal discomfort [Recovered/Resolved]
  - Rash erythematous [Recovered/Resolved]

NARRATIVE: CASE EVENT DATE: 20210909
